FAERS Safety Report 6179863-8 (Version None)
Quarter: 2009Q2

REPORT INFORMATION
  Report Type: 
  Country: None (occurrence: None)
  Receive Date: 20090501
  Receipt Date: 20090429
  Transmission Date: 20091009
  Serious: Yes (Other)
  Sender: FDA-Public Use
  Company Number: 1000006012

PATIENT
  Age: 53 Year
  Sex: Female

DRUGS (7)
  1. LEXAPRO [Suspect]
     Indication: DEPRESSION
     Dosage: 30 MG (30 MG, 1 IN 1 D), ORAL
     Route: 048
     Dates: start: 20020101, end: 20090301
  2. AMARYL [Concomitant]
  3. METOPROLOL [Concomitant]
  4. NORVASC [Concomitant]
  5. CRESTOR [Concomitant]
  6. LISINOPRIL [Concomitant]
  7. ADVIL [Concomitant]

REACTIONS (9)
  - ANXIETY [None]
  - ATRIOVENTRICULAR BLOCK [None]
  - CORONARY ARTERY DISEASE [None]
  - CRYING [None]
  - INCORRECT DOSE ADMINISTERED [None]
  - IRRITABILITY [None]
  - NERVOUSNESS [None]
  - OVERDOSE [None]
  - SENSORY DISTURBANCE [None]
